FAERS Safety Report 16175600 (Version 1)
Quarter: 2019Q2

REPORT INFORMATION
  Report Type: Spontaneous
  Country: US (occurrence: US)
  Receive Date: 20190409
  Receipt Date: 20190409
  Transmission Date: 20190711
  Serious: Yes (Hospitalization, Other)
  Sender: FDA-Public Use
  Company Number: US-SUNOVION-2019SUN001375

PATIENT
  Sex: Male

DRUGS (11)
  1. LATUDA [Suspect]
     Active Substance: LURASIDONE HYDROCHLORIDE
     Indication: NERVOUSNESS
     Dosage: 40 MG, 1 TAB QD
     Route: 048
  2. LATUDA [Suspect]
     Active Substance: LURASIDONE HYDROCHLORIDE
     Indication: FEAR
  3. FLUOXETINE [Suspect]
     Active Substance: FLUOXETINE HYDROCHLORIDE
  4. ABILIFY [Suspect]
     Active Substance: ARIPIPRAZOLE
  5. LITHIUM. [Suspect]
     Active Substance: LITHIUM
  6. LATUDA [Suspect]
     Active Substance: LURASIDONE HYDROCHLORIDE
     Indication: INTRUSIVE THOUGHTS
     Dosage: 80 MG
     Route: 048
  7. HALOPERIDOL. [Concomitant]
     Active Substance: HALOPERIDOL
  8. RISPERDAL [Concomitant]
     Active Substance: RISPERIDONE
  9. LATUDA [Suspect]
     Active Substance: LURASIDONE HYDROCHLORIDE
     Indication: BIPOLAR DISORDER
     Dosage: 60 MG
     Route: 048
  10. SEROQUEL [Suspect]
     Active Substance: QUETIAPINE FUMARATE
  11. TRAZODONE [Concomitant]
     Active Substance: TRAZODONE HYDROCHLORIDE

REACTIONS (8)
  - Psychotic disorder [Unknown]
  - Feeling abnormal [Unknown]
  - Violence-related symptom [Unknown]
  - Intrusive thoughts [Unknown]
  - Nervousness [Unknown]
  - Tremor [Unknown]
  - Nightmare [Unknown]
  - Fear [Unknown]
